FAERS Safety Report 12922526 (Version 1)
Quarter: 2016Q4

REPORT INFORMATION
  Report Type: Spontaneous
  Country: US (occurrence: US)
  Receive Date: 20161109
  Receipt Date: 20161109
  Transmission Date: 20170207
  Serious: No
  Sender: FDA-Public Use
  Company Number: US-AUROBINDO-AUR-APU-2016-04534

PATIENT
  Sex: Male

DRUGS (1)
  1. RIBAVIRIN TABLETS 200MG [Suspect]
     Active Substance: RIBAVIRIN
     Indication: HEPATITIS C
     Dosage: 200 MG, UNK
     Route: 065

REACTIONS (3)
  - Paraesthesia [Unknown]
  - Fatigue [Unknown]
  - Dizziness [Unknown]
